FAERS Safety Report 6238102-X (Version None)
Quarter: 2009Q2

REPORT INFORMATION
  Report Type: 
  Country: None (occurrence: None)
  Receive Date: 20090622
  Receipt Date: 20090611
  Transmission Date: 20091009
  Serious: Yes (Hospitalization)
  Sender: FDA-Public Use
  Company Number: IT-ASTRAZENECA-2009SE01359

PATIENT
  Age: 3853 Day
  Sex: Female

DRUGS (4)
  1. MERREM [Suspect]
     Indication: CEREBRAL HAEMORRHAGE
     Route: 042
     Dates: start: 20090306, end: 20090310
  2. THIOPENTAL SODIUM [Suspect]
     Indication: CEREBRAL HAEMORRHAGE
     Route: 042
     Dates: start: 20090306, end: 20090313
  3. LUMINALE [Suspect]
     Indication: CEREBRAL HAEMORRHAGE
     Route: 048
     Dates: start: 20090309, end: 20090313
  4. TARGOCID [Suspect]
     Indication: CEREBRAL HAEMORRHAGE
     Route: 042
     Dates: start: 20090306, end: 20090313

REACTIONS (3)
  - DERMATITIS BULLOUS [None]
  - PYREXIA [None]
  - STEVENS-JOHNSON SYNDROME [None]
